FAERS Safety Report 9535061 (Version 1)
Quarter: 2013Q3

REPORT INFORMATION
  Report Type: Report from Study
  Country: FR (occurrence: FR)
  Receive Date: 20130918
  Receipt Date: 20130918
  Transmission Date: 20140515
  Serious: Yes (Other)
  Sender: FDA-Public Use
  Company Number: FR-009507513-1309FRA007523

PATIENT
  Age: 29 Year
  Sex: Female

DRUGS (1)
  1. LOSARTAN POTASSIUM [Suspect]
     Route: 048

REACTIONS (3)
  - Abortion induced [Recovered/Resolved]
  - Oligohydramnios [Not Recovered/Not Resolved]
  - Exposure during pregnancy [Recovered/Resolved]
